FAERS Safety Report 18188401 (Version 1)
Quarter: 2020Q3

REPORT INFORMATION
  Report Type: Spontaneous
  Country: JP (occurrence: JP)
  Receive Date: 20200824
  Receipt Date: 20200824
  Transmission Date: 20201103
  Serious: Yes (Other)
  Sender: FDA-Public Use
  Company Number: JP-PFIZER INC-2020321431

PATIENT

DRUGS (2)
  1. PREMARIN [Suspect]
     Active Substance: ESTROGENS, CONJUGATED
     Indication: KAUFMAN-MCKUSICK SYNDROME
     Dosage: UNK, MONTHLY
     Route: 048
  2. DUPHASTON [Suspect]
     Active Substance: DYDROGESTERONE
     Indication: KAUFMAN-MCKUSICK SYNDROME
     Dosage: UNK, MONTHLY
     Route: 048

REACTIONS (3)
  - Off label use [Unknown]
  - Product use in unapproved indication [Unknown]
  - Haemorrhage [Unknown]
